FAERS Safety Report 10168247 (Version 1)
Quarter: 2014Q2

REPORT INFORMATION
  Report Type: Report from Study
  Country: US (occurrence: US)
  Receive Date: 20140512
  Receipt Date: 20140512
  Transmission Date: 20141212
  Serious: Yes (Life-Threatening, Hospitalization)
  Sender: FDA-Public Use
  Company Number: US-MYLANLABS-2014S1010383

PATIENT
  Age: 40 Year
  Sex: Male

DRUGS (12)
  1. VERAPAMIL [Suspect]
     Dosage: EXTENDED-RELEASE
     Route: 048
  2. LIPID EMULSION [Suspect]
     Indication: HYPOTENSION
     Dosage: 20% 1.5 ML/KG; THEN 0.25 ML/KG/MIN
     Route: 040
  3. LIPID EMULSION [Suspect]
     Indication: HYPOTENSION
     Dosage: 20% 0.25 ML/KG/MIN FOR 30 MIN
     Route: 041
  4. CHARCOAL [Concomitant]
     Route: 065
  5. CALCIUM [Concomitant]
     Route: 065
  6. INSULIN [Concomitant]
     Route: 065
  7. EPINEPHRINE [Concomitant]
     Dosage: CONTINUOUS INFUSION
     Route: 050
  8. NOREPINEPHRINE [Concomitant]
     Dosage: CONTINUOUS INFUSION
     Route: 050
  9. DOBUTAMINE [Concomitant]
     Dosage: CONTINUOUS INFUSION
     Route: 050
  10. VASOPRESSIN [Concomitant]
     Dosage: CONTINUOUS INFUSION
     Route: 050
  11. PHENYLEPHRINE [Concomitant]
     Dosage: CONTINUOUS INFUSION
     Route: 050
  12. SODIUM BICARBONATE [Concomitant]
     Indication: METABOLIC ACIDOSIS
     Route: 065

REACTIONS (8)
  - Nodal rhythm [Recovered/Resolved]
  - Metabolic acidosis [Recovered/Resolved]
  - Hypotension [Recovered/Resolved]
  - Anuria [Recovered/Resolved]
  - Hyperlipidaemia [Recovered/Resolved]
  - Laboratory test interference [Recovered/Resolved]
  - Haemodialysis complication [Recovered/Resolved]
  - Acute respiratory distress syndrome [Recovered/Resolved]
